FAERS Safety Report 9642060 (Version 1)
Quarter: 2013Q4

REPORT INFORMATION
  Report Type: Spontaneous
  Country: CN (occurrence: CN)
  Receive Date: 20131023
  Receipt Date: 20131023
  Transmission Date: 20140711
  Serious: Yes (Hospitalization)
  Sender: FDA-Public Use
  Company Number: PHHY2013CN117791

PATIENT
  Age: 71 Year
  Sex: Male

DRUGS (5)
  1. BROMOCRIPTINE [Suspect]
     Indication: PROLACTINOMA
     Dosage: 2.5 MG, Q12H
     Route: 048
  2. ROSUVASTATIN CALCIUM [Suspect]
     Indication: LIPIDS ABNORMAL
     Dosage: 10 MG, QD
     Route: 048
  3. CEFPIROME [Concomitant]
     Indication: INFECTION
     Dosage: 2 G, Q12H
  4. MELBIN [Concomitant]
     Indication: BLOOD GLUCOSE ABNORMAL
     Dosage: 0.25 G, BID
     Route: 048
  5. ACARBOSE [Concomitant]
     Indication: BLOOD GLUCOSE ABNORMAL
     Dosage: 50 MG, BID
     Route: 048

REACTIONS (3)
  - Hepatic lesion [Unknown]
  - Alanine aminotransferase increased [Recovering/Resolving]
  - Aspartate aminotransferase increased [Recovering/Resolving]
